FAERS Safety Report 8302818-1 (Version None)
Quarter: 2012Q2

REPORT INFORMATION
  Report Type: 
  Country: None (occurrence: None)
  Receive Date: 20120420
  Receipt Date: 20120405
  Transmission Date: 20120825
  Serious: Yes (Other)
  Sender: FDA-Public Use
  Company Number: CHPA2012US009075

PATIENT
  Age: 47 Year
  Sex: Female

DRUGS (2)
  1. IMITREX [Suspect]
     Indication: HEADACHE
     Dosage: UNK, UNK
  2. EXCEDRIN (MIGRAINE) [Suspect]
     Indication: HEADACHE
     Dosage: UNK, UNK
     Route: 048

REACTIONS (3)
  - BLOOD PRESSURE INCREASED [None]
  - AMNESIA [None]
  - HEADACHE [None]
